FAERS Safety Report 15956309 (Version 1)
Quarter: 2019Q1

REPORT INFORMATION
  Report Type: Spontaneous
  Country: US (occurrence: US)
  Receive Date: 20190213
  Receipt Date: 20190213
  Transmission Date: 20190417
  Serious: No
  Sender: FDA-Public Use
  Company Number: US-BAYER-2019-031419

PATIENT
  Age: 46 Year
  Sex: Male
  Weight: 86 kg

DRUGS (1)
  1. CLARITIN [Suspect]
     Active Substance: LORATADINE
     Dosage: 1 DF, OM
     Route: 048
     Dates: start: 201901, end: 20190211

REACTIONS (1)
  - Drug ineffective [Unknown]
